FAERS Safety Report 17159732 (Version 3)
Quarter: 2020Q1

REPORT INFORMATION
  Report Type: Spontaneous
  Country: PT (occurrence: PT)
  Receive Date: 20191216
  Receipt Date: 20200326
  Transmission Date: 20200409
  Serious: Yes (Disabling)
  Sender: FDA-Public Use
  Company Number: PT-BAYER-2019-225996

PATIENT
  Age: 80 Year
  Sex: Male
  Weight: 75 kg

DRUGS (40)
  1. ZOLEDRONIC ACID [Suspect]
     Active Substance: ZOLEDRONIC ACID
     Dosage: UNK
     Dates: start: 201801, end: 20181221
  2. GLYCERYL TRINITRATE [Concomitant]
     Active Substance: NITROGLYCERIN
     Route: 062
  3. FLUTICASONE. [Concomitant]
     Active Substance: FLUTICASONE
     Route: 045
  4. PANTOPRAZOLE [Concomitant]
     Active Substance: PANTOPRAZOLE
  5. TRAMADOL. [Concomitant]
     Active Substance: TRAMADOL
  6. NITROGLICERINA [Concomitant]
     Active Substance: NITROGLYCERIN
  7. GOSERELIN [Concomitant]
     Active Substance: GOSERELIN
     Dates: end: 20180802
  8. LOSARTAN. [Concomitant]
     Active Substance: LOSARTAN
  9. HYDROCORTISONE. [Concomitant]
     Active Substance: HYDROCORTISONE
  10. AMLODIPINE [Concomitant]
     Active Substance: AMLODIPINE BESYLATE
  11. GOSERELIN [Concomitant]
     Active Substance: GOSERELIN
     Dates: end: 20180802
  12. PREDNISOLONE. [Concomitant]
     Active Substance: PREDNISOLONE
  13. PREDNISOLONE. [Concomitant]
     Active Substance: PREDNISOLONE
  14. LOSARTAN. [Concomitant]
     Active Substance: LOSARTAN
  15. CARVEDILOL. [Concomitant]
     Active Substance: CARVEDILOL
  16. ESCITALOPRAM [Concomitant]
     Active Substance: ESCITALOPRAM OXALATE
  17. DOCETAXEL. [Concomitant]
     Active Substance: DOCETAXEL
     Route: 042
  18. HYDROCORTISONE. [Concomitant]
     Active Substance: HYDROCORTISONE
  19. PANTOPRAZOLE [Concomitant]
     Active Substance: PANTOPRAZOLE
  20. TRAMADOL. [Concomitant]
     Active Substance: TRAMADOL
  21. XOFIGO [Suspect]
     Active Substance: RADIUM RA-223 DICHLORIDE
     Indication: HORMONE-REFRACTORY PROSTATE CANCER
     Dosage: 55 MBQ (75 KG), Q4WK
     Route: 042
     Dates: start: 20190806, end: 20191001
  22. GLYCERYL TRINITRATE [Concomitant]
     Active Substance: NITROGLYCERIN
     Route: 062
  23. GABAPENTIN. [Concomitant]
     Active Substance: GABAPENTIN
  24. TAMSULOSIN [Concomitant]
     Active Substance: TAMSULOSIN
  25. CARVEDILOL. [Concomitant]
     Active Substance: CARVEDILOL
  26. RUPATADINE [Concomitant]
     Active Substance: RUPATADINE
  27. XOFIGO [Suspect]
     Active Substance: RADIUM RA-223 DICHLORIDE
     Indication: METASTASIS
  28. DOCETAXEL. [Concomitant]
     Active Substance: DOCETAXEL
     Route: 042
  29. FLUTICASONE. [Concomitant]
     Active Substance: FLUTICASONE
     Route: 045
  30. NICORANDIL [Concomitant]
     Active Substance: NICORANDIL
  31. ESCITALOPRAM [Concomitant]
     Active Substance: ESCITALOPRAM OXALATE
  32. GABAPENTIN. [Concomitant]
     Active Substance: GABAPENTIN
  33. SOLIFENACIN [Concomitant]
     Active Substance: SOLIFENACIN
  34. PARACETAMOL [Concomitant]
     Active Substance: ACETAMINOPHEN
  35. GLYCERYL TRINITRATE [Concomitant]
     Active Substance: NITROGLYCERIN
  36. GOSERELIN [Concomitant]
     Active Substance: GOSERELIN
  37. NICORANDIL [Concomitant]
     Active Substance: NICORANDIL
  38. RUPATADINE [Concomitant]
     Active Substance: RUPATADINE
  39. AMLODIPINE [Concomitant]
     Active Substance: AMLODIPINE BESYLATE
  40. PARACETAMOL [Concomitant]
     Active Substance: ACETAMINOPHEN

REACTIONS (1)
  - Osteonecrosis of jaw [Recovered/Resolved]

NARRATIVE: CASE EVENT DATE: 20191017
